FAERS Safety Report 6419167-9 (Version None)
Quarter: 2009Q4

REPORT INFORMATION
  Report Type: 
  Country: None (occurrence: None)
  Receive Date: 20091029
  Receipt Date: 20091022
  Transmission Date: 20100525
  Serious: Yes (Hospitalization)
  Sender: FDA-Public Use
  Company Number: PHHO2009KR12678

PATIENT
  Sex: Female
  Weight: 53 kg

DRUGS (4)
  1. ERL 080A ERL+TAB [Suspect]
     Indication: RENAL TRANSPLANT
     Dosage: 360 MG, BID
     Route: 048
     Dates: start: 20090520
  2. ERL 080A ERL+TAB [Suspect]
     Dosage: UNK
     Route: 048
     Dates: start: 20091017
  3. TACROLIMUS [Concomitant]
     Indication: RENAL TRANSPLANT
     Dosage: 2 MG, BID
     Route: 048
     Dates: start: 20090519
  4. PRANDIN [Concomitant]
     Indication: RENAL TRANSPLANT
     Dosage: 6 MG, BID
     Route: 048
     Dates: start: 20090525

REACTIONS (3)
  - BLOOD CREATININE INCREASED [None]
  - KIDNEY FIBROSIS [None]
  - RENAL TUBULAR ATROPHY [None]
